FAERS Safety Report 4641741-0 (Version None)
Quarter: 2005Q2

REPORT INFORMATION
  Report Type: 
  Country: None (occurrence: None)
  Receive Date: 20050421
  Receipt Date: 20050421
  Transmission Date: 20051028
  Serious: Yes (Death)
  Sender: FDA-Public Use
  Company Number: 2005-04-0969

PATIENT
  Age: 58 Year
  Sex: Male

DRUGS (4)
  1. K-DUR 10 [Suspect]
     Dosage: ORAL
     Route: 048
  2. NITRO-DUR [Suspect]
     Dosage: TRANSDERMAL
     Route: 062
  3. PROVENTIL [Suspect]
     Dosage: ORAL AER INH
     Route: 048
  4. PROVENTIL [Suspect]
     Dosage: INHALATION
     Route: 055

REACTIONS (1)
  - DEATH [None]
